FAERS Safety Report 16470275 (Version 2)
Quarter: 2019Q4

REPORT INFORMATION
  Report Type: Spontaneous
  Country: US (occurrence: US)
  Receive Date: 20190624
  Receipt Date: 20191003
  Transmission Date: 20200122
  Serious: No
  Sender: FDA-Public Use
  Company Number: US-AVEDRO-AVE-2019-0084-AE

PATIENT
  Age: 35 Year
  Sex: Male

DRUGS (3)
  1. PHOTREXA VISCOUS [Suspect]
     Active Substance: RIBOFLAVIN 5^-PHOSPHATE SODIUM
     Indication: PRODUCT USED FOR UNKNOWN INDICATION
     Route: 047
     Dates: start: 20190322, end: 20190322
  2. ACUVUE OASYS BANDAGE CONTACT LENS [Suspect]
     Active Substance: DEVICE
     Indication: PRODUCT USED FOR UNKNOWN INDICATION
     Dosage: 8.4 VAULT BASE CURVE
     Route: 047
     Dates: start: 20190322, end: 20190327
  3. TETRACAINE. [Concomitant]
     Active Substance: TETRACAINE
     Indication: ANAESTHESIA
     Route: 047
     Dates: start: 20190322, end: 20190322

REACTIONS (3)
  - Corneal opacity [Recovered/Resolved]
  - Corneal infiltrates [Recovered/Resolved]
  - Diapedesis [Recovered/Resolved]

NARRATIVE: CASE EVENT DATE: 20190327
